FAERS Safety Report 23510679 (Version 1)
Quarter: 2024Q1

REPORT INFORMATION
  Report Type: Spontaneous
  Country: US (occurrence: US)
  Receive Date: 20240211
  Receipt Date: 20240211
  Transmission Date: 20240410
  Serious: No
  Sender: FDA-Public Use
  Company Number: US-AIMMUNE THERAPEUTICS, INC.-2024AIMT00002

PATIENT

DRUGS (3)
  1. PALFORZIA [Suspect]
     Active Substance: PEANUT
     Indication: Food allergy
     Dosage: IDE (0.5-6MG), ONCE
     Route: 048
  2. PALFORZIA [Suspect]
     Active Substance: PEANUT
     Dosage: 300 MG, 1X/DAY
     Route: 048
     Dates: start: 20231101
  3. PALFORZIA [Suspect]
     Active Substance: PEANUT
     Dosage: 300 MG, OMCE, LAST DOSE PRIOR EVENT300 MG, ONCE
     Route: 048
     Dates: start: 202312, end: 202312

REACTIONS (1)
  - Nasopharyngitis [Recovered/Resolved]
